FAERS Safety Report 5507968-0 (Version None)
Quarter: 2007Q4

REPORT INFORMATION
  Report Type: 
  Country: None (occurrence: None)
  Receive Date: 20071106
  Receipt Date: 20071024
  Transmission Date: 20080405
  Serious: Yes (Other)
  Sender: FDA-Public Use
  Company Number: PT-PFIZER INC-2007053504

PATIENT
  Sex: Male
  Weight: 70 kg

DRUGS (6)
  1. CHAMPIX [Suspect]
     Indication: SMOKING CESSATION THERAPY
     Route: 048
     Dates: start: 20070401, end: 20070401
  2. CHAMPIX [Suspect]
     Route: 048
     Dates: start: 20070401, end: 20070401
  3. CHAMPIX [Suspect]
     Route: 048
     Dates: start: 20070401, end: 20070501
  4. SIMVASTATIN [Concomitant]
     Route: 048
     Dates: start: 20060101, end: 20070701
  5. NIMED [Concomitant]
  6. ETORICOXIB [Concomitant]
     Dates: end: 20070201

REACTIONS (2)
  - RASH PRURITIC [None]
  - TOXIC SKIN ERUPTION [None]
